FAERS Safety Report 22526199 (Version 2)
Quarter: 2023Q2

REPORT INFORMATION
  Report Type: Spontaneous
  Country: US (occurrence: US)
  Receive Date: 20230606
  Receipt Date: 20230629
  Transmission Date: 20230721
  Serious: Yes (Hospitalization)
  Sender: FDA-Public Use
  Company Number: US-LUNDBECK-DKLU3062964

PATIENT
  Age: 37 Year
  Sex: Male
  Weight: 96.81 kg

DRUGS (7)
  1. VYEPTI [Suspect]
     Active Substance: EPTINEZUMAB-JJMR
     Indication: Migraine
     Route: 041
     Dates: start: 20220728
  2. VYEPTI [Suspect]
     Active Substance: EPTINEZUMAB-JJMR
     Route: 041
     Dates: start: 20230308
  3. VYEPTI [Suspect]
     Active Substance: EPTINEZUMAB-JJMR
     Route: 041
     Dates: start: 20230601
  4. NAMENDA [Concomitant]
     Active Substance: MEMANTINE HYDROCHLORIDE
     Indication: Migraine
     Route: 065
  5. MAXALT [Concomitant]
     Active Substance: RIZATRIPTAN BENZOATE
     Indication: Migraine
     Route: 065
  6. MAGNESIUM [Concomitant]
     Active Substance: MAGNESIUM
     Indication: Migraine
     Route: 065
  7. RIBOFLAVIN [Concomitant]
     Active Substance: RIBOFLAVIN
     Indication: Migraine
     Route: 065

REACTIONS (3)
  - Migraine [Recovered/Resolved]
  - Therapeutic response decreased [Recovered/Resolved]
  - Product temperature excursion issue [Recovered/Resolved]

NARRATIVE: CASE EVENT DATE: 20230308
